FAERS Safety Report 23905742 (Version 1)
Quarter: 2024Q2

REPORT INFORMATION
  Report Type: Spontaneous
  Country: JP (occurrence: JP)
  Receive Date: 20240527
  Receipt Date: 20240527
  Transmission Date: 20240715
  Serious: Yes (Hospitalization, Other)
  Sender: FDA-Public Use
  Company Number: JP-MSD-2405JPN002563J

PATIENT
  Sex: Female

DRUGS (2)
  1. KEYTRUDA [Suspect]
     Active Substance: PEMBROLIZUMAB
     Indication: Uterine cancer
     Dosage: 200 MILLIGRAM, Q3W
     Route: 041
     Dates: start: 20230220, end: 20230424
  2. LENVATINIB MESYLATE [Concomitant]
     Active Substance: LENVATINIB MESYLATE
     Indication: Uterine cancer
     Dosage: 10 MILLIGRAM
     Route: 048
     Dates: start: 20230403, end: 20230501

REACTIONS (5)
  - Malignant neoplasm progression [Unknown]
  - Cerebral infarction [Unknown]
  - Interstitial lung disease [Recovering/Resolving]
  - Blood thyroid stimulating hormone increased [Unknown]
  - Off label use [Unknown]

NARRATIVE: CASE EVENT DATE: 20230220
